FAERS Safety Report 7394967-X (Version None)
Quarter: 2011Q2

REPORT INFORMATION
  Report Type: 
  Country: None (occurrence: None)
  Receive Date: 20110405
  Receipt Date: 20110401
  Transmission Date: 20111010
  Serious: Yes (Other)
  Sender: FDA-Public Use
  Company Number: US-PFIZER INC-2009263682

PATIENT
  Sex: Female
  Weight: 117 kg

DRUGS (16)
  1. PERCOCET [Suspect]
     Indication: RHEUMATOID ARTHRITIS
     Dosage: 10 MG, 1X/DAY
     Route: 048
     Dates: start: 20100201
  2. PRILOSEC [Concomitant]
     Indication: GASTROOESOPHAGEAL REFLUX DISEASE
     Dosage: 20 MG, DAILY
  3. IMURAN [Concomitant]
     Indication: ARTHRITIS
  4. IPRATROPIUM [Concomitant]
     Indication: ASTHMA
     Dosage: UNK
  5. TIKOSYN [Suspect]
     Indication: ATRIAL FIBRILLATION
     Dosage: 0.5 MG, 2X/DAY
     Route: 048
     Dates: start: 20060101
  6. PREDNISONE [Suspect]
     Indication: RHEUMATOID ARTHRITIS
     Dosage: 10 MG, 1X/DAY
     Route: 048
     Dates: start: 20020101
  7. REMICADE [Concomitant]
     Indication: RHEUMATOID ARTHRITIS
     Dosage: UNK
     Route: 042
  8. OMEPRAZOLE [Concomitant]
     Indication: GASTROOESOPHAGEAL REFLUX DISEASE
     Dosage: UNK
  9. DARVOCET [Suspect]
     Indication: ARTHRALGIA
     Dosage: UNK
     Route: 048
     Dates: end: 20100101
  10. CLARITIN [Concomitant]
     Indication: HYPERSENSITIVITY
     Dosage: 10 MG, DAILY
     Route: 048
  11. GLUCOSAMINE HYDROCHLORIDE/CHONDROITIN SULFATE [Concomitant]
     Indication: SUPPLEMENTATION THERAPY
     Dosage: 1500/1000 1 DF IN THE MORNING AND 2 DF IN THE NIGHT
     Route: 048
  12. ARAVA [Concomitant]
     Indication: RHEUMATOID ARTHRITIS
     Dosage: UNK
  13. TRIAMCORT - SLOW RELEASE [Concomitant]
     Indication: ASTHMA
     Dosage: UNK
  14. TIKOSYN [Suspect]
     Indication: ATRIAL FLUTTER
     Dosage: 0.5 MG, 1X/DAY
     Route: 048
  15. ARAVA [Concomitant]
     Indication: ARTHRALGIA
     Dosage: 50 MG, DAILY
     Route: 048
  16. ALBUTEROL [Concomitant]
     Indication: ASTHMA
     Dosage: UNK

REACTIONS (8)
  - PROTEIN TOTAL DECREASED [None]
  - SOMNOLENCE [None]
  - COLITIS [None]
  - CONDITION AGGRAVATED [None]
  - WEIGHT INCREASED [None]
  - HEART RATE INCREASED [None]
  - RHEUMATOID ARTHRITIS [None]
  - FATIGUE [None]
